FAERS Safety Report 17084308 (Version 1)
Quarter: 2020Q3

REPORT INFORMATION
  Report Type: Report from Study
  Country: CA (occurrence: CA)
  Receive Date: 20191127
  Receipt Date: 20191127
  Transmission Date: 20201105
  Serious: Yes (Life-Threatening, Other)
  Sender: FDA-Public Use
  Company Number: NVSC2019CA045206

PATIENT
  Age: 32 Year
  Sex: Male

DRUGS (8)
  1. PANTOPRAZOLE [Concomitant]
     Active Substance: PANTOPRAZOLE
     Indication: PRODUCT USED FOR UNKNOWN INDICATION
     Route: 048
  2. LEPONEX [Suspect]
     Active Substance: CLOZAPINE
     Dosage: 25 MG, QD
     Route: 065
  3. ROSUVASTATIN. [Suspect]
     Active Substance: ROSUVASTATIN
     Indication: PRODUCT USED FOR UNKNOWN INDICATION
     Dosage: 5 MG, QD
     Route: 048
  4. CLOMIPRAMINE [Concomitant]
     Active Substance: CLOMIPRAMINE
     Indication: PRODUCT USED FOR UNKNOWN INDICATION
     Route: 048
  5. LEPONEX [Suspect]
     Active Substance: CLOZAPINE
     Indication: SCHIZOPHRENIA
     Dosage: 50 MG, QD
     Route: 048
  6. HALOPERIDOL. [Concomitant]
     Active Substance: HALOPERIDOL
     Indication: PRODUCT USED FOR UNKNOWN INDICATION
     Route: 048
  7. BISOPROLOL [Concomitant]
     Active Substance: BISOPROLOL
     Indication: PRODUCT USED FOR UNKNOWN INDICATION
     Route: 048
  8. LEPONEX [Suspect]
     Active Substance: CLOZAPINE
     Dosage: 75 MG, QD
     Route: 048

REACTIONS (3)
  - Tachycardia [Recovered/Resolved]
  - Ventricular extrasystoles [Recovered/Resolved]
  - Electrocardiogram QT prolonged [Recovered/Resolved]
